FAERS Safety Report 4646059-8 (Version None)
Quarter: 2005Q2

REPORT INFORMATION
  Report Type: 
  Country: None (occurrence: None)
  Receive Date: 20050425
  Receipt Date: 20050411
  Transmission Date: 20051028
  Serious: Yes (Death, Other)
  Sender: FDA-Public Use
  Company Number: 2002106777US

PATIENT
  Age: 37 Year
  Sex: Female
  Weight: 69.99 kg

DRUGS (5)
  1. DEPO-PROVERA [Suspect]
     Indication: PELVIC PAIN
     Dosage: SEE IMAGE
     Route: 030
     Dates: start: 19911001, end: 19911001
  2. DEPO-PROVERA [Suspect]
     Indication: PELVIC PAIN
     Dosage: SEE IMAGE
     Route: 030
     Dates: start: 20011201, end: 20011201
  3. METHADONE HCL [Concomitant]
  4. ATENOLOL [Concomitant]
  5. CODEINE PHOSPHATE AND ACETAMINOPHEN [Concomitant]

REACTIONS (17)
  - ABDOMINAL DISTENSION [None]
  - ALOPECIA [None]
  - ANKLE FRACTURE [None]
  - BONE DISORDER [None]
  - DEAFNESS [None]
  - FACIAL DYSMORPHISM [None]
  - FOOT FRACTURE [None]
  - HYPERTRICHOSIS [None]
  - MULTIPLE FRACTURES [None]
  - OSTEOPOROSIS [None]
  - OVARIAN FAILURE [None]
  - SPINAL MUSCULAR ATROPHY CONGENITAL [None]
  - SWELLING [None]
  - TEETH BRITTLE [None]
  - TOOTH DISORDER [None]
  - TOOTH FRACTURE [None]
  - WEIGHT INCREASED [None]
